FAERS Safety Report 11638025 (Version 1)
Quarter: 2015Q4

REPORT INFORMATION
  Report Type: Report from Study
  Country: US (occurrence: US)
  Receive Date: 20151016
  Receipt Date: 20151016
  Transmission Date: 20160304
  Serious: Yes (Death, Other)
  Sender: FDA-Public Use
  Company Number: US-BAYER-2015-430229

PATIENT
  Age: 87 Year
  Sex: Male

DRUGS (1)
  1. STIVARGA [Suspect]
     Active Substance: REGORAFENIB
     Indication: COLORECTAL CANCER
     Dosage: 160 MG, QD (4 X 40 MG)
     Route: 048
     Dates: start: 20150828

REACTIONS (3)
  - Myocardial infarction [Fatal]
  - Pain of skin [None]
  - Rash [None]

NARRATIVE: CASE EVENT DATE: 20151003
